FAERS Safety Report 18189841 (Version 3)
Quarter: 2021Q3

REPORT INFORMATION
  Report Type: Report from Study
  Country: US (occurrence: US)
  Receive Date: 20200825
  Receipt Date: 20210824
  Transmission Date: 20211014
  Serious: No
  Sender: FDA-Public Use
  Company Number: US-SA-2020SA225329

PATIENT
  Age: 55 Year
  Sex: Female

DRUGS (2)
  1. DUPIXENT [Suspect]
     Active Substance: DUPILUMAB
     Dosage: 300 MG, QOW
     Route: 058
     Dates: start: 2019, end: 2021
  2. DUPIXENT [Suspect]
     Active Substance: DUPILUMAB
     Indication: ASTHMA
     Dosage: 600 MG, 1X
     Route: 058
     Dates: start: 20190918, end: 20190918

REACTIONS (18)
  - Dyspnoea [Not Recovered/Not Resolved]
  - Cerebral disorder [Unknown]
  - Hypersensitivity [Unknown]
  - Bone pain [Unknown]
  - Respiratory disorder [Unknown]
  - SARS-CoV-2 test positive [Unknown]
  - Anxiety [Unknown]
  - Vision blurred [Unknown]
  - Ear pain [Unknown]
  - Sinus disorder [Not Recovered/Not Resolved]
  - Product dose omission in error [Unknown]
  - Visual impairment [Unknown]
  - Productive cough [Unknown]
  - Bronchitis [Not Recovered/Not Resolved]
  - Product use issue [Unknown]
  - COVID-19 [Unknown]
  - Ear swelling [Unknown]
  - Product dose omission issue [Unknown]

NARRATIVE: CASE EVENT DATE: 20190918
